FAERS Safety Report 4750160-8 (Version None)
Quarter: 2005Q3

REPORT INFORMATION
  Report Type: 
  Country: None (occurrence: None)
  Receive Date: 20050819
  Receipt Date: 20050808
  Transmission Date: 20060218
  Serious: Yes (Other)
  Sender: FDA-Public Use
  Company Number: 2005112435

PATIENT
  Age: 44 Year
  Sex: Female
  Weight: 62.5964 kg

DRUGS (3)
  1. NEURONTIN [Suspect]
     Indication: DEPRESSION
     Dosage: 1200 MG (2 IN 1 D)
     Dates: start: 20020101
  2. KLONOPIN [Concomitant]
  3. EFFEXOR XR [Concomitant]

REACTIONS (5)
  - BACK DISORDER [None]
  - HEPATITIS C [None]
  - NASOPHARYNGITIS [None]
  - RASH [None]
  - VASCULITIS [None]
